FAERS Safety Report 6105682-4 (Version None)
Quarter: 2009Q1

REPORT INFORMATION
  Report Type: 
  Country: None (occurrence: None)
  Receive Date: 20090306
  Receipt Date: 20090224
  Transmission Date: 20090719
  Serious: Yes (Disabling)
  Sender: FDA-Public Use
  Company Number: DE-PFIZER INC-2009171025

PATIENT

DRUGS (4)
  1. CELEBREX [Suspect]
     Indication: ARTHRALGIA
     Dosage: UNK
     Dates: start: 20070101
  2. DICLOFENAC SODIUM [Suspect]
     Indication: ARTHRALGIA
  3. VIOXX [Suspect]
     Indication: ARTHRALGIA
  4. RANTUDIL [Suspect]
     Indication: ARTHRALGIA

REACTIONS (1)
  - DEAFNESS [None]
